FAERS Safety Report 8584181-4 (Version None)
Quarter: 2012Q3

REPORT INFORMATION
  Report Type: 
  Country: None (occurrence: None)
  Receive Date: 20120810
  Receipt Date: 20120807
  Transmission Date: 20120928
  Serious: Yes (Death, Hospitalization, Other)
  Sender: FDA-Public Use
  Company Number: US-AMGEN-USASP2012028993

PATIENT
  Age: 80 Year
  Sex: Female

DRUGS (16)
  1. SIMVASTATIN [Concomitant]
     Dosage: 80 DF, QD
     Dates: start: 20080901
  2. ASPIRIN [Concomitant]
     Dosage: 81 DF, QD
     Dates: start: 20080901
  3. COLACE [Concomitant]
     Dosage: 100 DF, QD
  4. HYDROCHLOROTHIAZIDE [Concomitant]
     Dosage: 50 MG, QD
  5. BENADRYL [Concomitant]
  6. PROLIA [Suspect]
     Indication: OSTEOPOROSIS POSTMENOPAUSAL
     Dosage: 60 MG, ONE TIME DOSE
     Route: 058
     Dates: start: 20120227, end: 20120227
  7. LISINOPRIL [Concomitant]
     Dosage: 40 MG, QD
     Dates: start: 20080901
  8. LORATADINE [Concomitant]
     Dosage: 10 DF, UNK
  9. SYNTHROID [Concomitant]
     Dosage: 50 MG, QD
     Dates: start: 20080901
  10. AMBIEN CR [Concomitant]
     Dosage: 6.25 DF, QD
     Dates: start: 20080901
  11. CYCLOBENZAPRINE [Concomitant]
     Dosage: 10 DF, UNK
  12. CRESTOR [Concomitant]
     Dosage: 20 MG, QD
  13. ATENOLOL [Concomitant]
     Dosage: 25 MG, QD
     Dates: start: 20080901
  14. CALTRATE                           /00751519/ [Concomitant]
     Dosage: 600 MG, QD
     Dates: start: 20080901
  15. CENTRUM SILVER                     /01292501/ [Concomitant]
     Dosage: UNK UNK, QD
     Dates: start: 20080901
  16. BONIVA [Concomitant]
     Dosage: 150 DF, UNK

REACTIONS (4)
  - OSTEOMYELITIS [None]
  - OSTEONECROSIS OF JAW [None]
  - PATHOLOGICAL FRACTURE [None]
  - DEATH [None]
